FAERS Safety Report 16893327 (Version 2)
Quarter: 2020Q1

REPORT INFORMATION
  Report Type: Spontaneous
  Country: SE (occurrence: SE)
  Receive Date: 20191008
  Receipt Date: 20200103
  Transmission Date: 20200409
  Serious: Yes (Hospitalization)
  Sender: FDA-Public Use
  Company Number: SE-TEVA-2019-SE-1118188

PATIENT
  Sex: Female

DRUGS (11)
  1. LAMOTRIGINE. [Suspect]
     Active Substance: LAMOTRIGINE
     Dosage: UNCLEAR AMOUNT
     Route: 048
     Dates: start: 20181014, end: 20181014
  2. SERTRALINE [Suspect]
     Active Substance: SERTRALINE HYDROCHLORIDE
     Dosage: UNCLEAR AMOUNT
     Route: 048
     Dates: start: 20181014, end: 20181014
  3. CISORDINOL [Suspect]
     Active Substance: ZUCLOPENTHIXOL
     Dosage: UNCLEAR AMOUNT
     Route: 048
     Dates: start: 20181014, end: 20181014
  4. ARIPIPRAZOL [Suspect]
     Active Substance: ARIPIPRAZOLE
     Dosage: UNCLEAR AMOUNT
     Route: 048
     Dates: start: 20181014, end: 20181014
  5. OLANZAPINE. [Suspect]
     Active Substance: OLANZAPINE
     Dosage: 1 ST AT 5 MG
     Route: 048
     Dates: start: 20181014, end: 20181014
  6. LERGIGAN [PROMETHAZINE HYDROCHLORIDE] [Suspect]
     Active Substance: PROMETHAZINE HYDROCHLORIDE
     Dosage: 36 THE ALLERGY TO 25 MG
     Route: 048
     Dates: start: 20181014, end: 20181014
  7. NALTREXONE [Suspect]
     Active Substance: NALTREXONE
     Dosage: UNCLEAR AMOUNT
     Route: 048
     Dates: start: 20181014, end: 20181014
  8. STESOLID [Suspect]
     Active Substance: DIAZEPAM
     Dosage: 4 STESOLID IS 20 MG
     Route: 048
     Dates: start: 20181014, end: 20181014
  9. ALIMEMAZINE [Suspect]
     Active Substance: TRIMEPRAZINE
     Dosage: UNCLEAR AMOUNT
     Route: 048
     Dates: start: 20181014, end: 20181014
  10. MELATONIN [Suspect]
     Active Substance: MELATONIN
     Dosage: UNCLEAR AMOUNT
     Route: 048
     Dates: start: 20181014, end: 20181014
  11. PARGITAN [Suspect]
     Active Substance: TRIHEXYPHENIDYL HYDROCHLORIDE
     Dosage: UNCLEAR AMOUNT
     Route: 048
     Dates: start: 20181014, end: 20181014

REACTIONS (4)
  - Fatigue [Unknown]
  - Intentional self-injury [Unknown]
  - Depressed level of consciousness [Unknown]
  - Intentional overdose [Unknown]

NARRATIVE: CASE EVENT DATE: 201810
